FAERS Safety Report 8006924-0 (Version None)
Quarter: 2011Q4

REPORT INFORMATION
  Report Type: 
  Country: None (occurrence: None)
  Receive Date: 20111227
  Receipt Date: 20111219
  Transmission Date: 20120403
  Serious: Yes (Other)
  Sender: FDA-Public Use
  Company Number: JP-JNJFOC-20111210634

PATIENT
  Age: 50 Year
  Sex: Female

DRUGS (2)
  1. TRAMADOL HYDROCHLORIDE/ACETAMINOPHEN [Suspect]
     Indication: PAIN
     Dosage: 3 TABLETS THRICE DAILY
     Route: 048
     Dates: start: 20111216
  2. KETAMINE HCL [Suspect]
     Indication: PRODUCT USED FOR UNKNOWN INDICATION
     Route: 065

REACTIONS (1)
  - LIVER DISORDER [None]
